FAERS Safety Report 4711158-9 (Version None)
Quarter: 2005Q3

REPORT INFORMATION
  Report Type: 
  Country: None (occurrence: None)
  Receive Date: 20050708
  Receipt Date: 20050701
  Transmission Date: 20060218
  Serious: Yes (Life-Threatening, Hospitalization, Other)
  Sender: FDA-Public Use
  Company Number: HQWYE629123JUN05

PATIENT
  Age: 72 Year
  Sex: Male

DRUGS (2)
  1. EFFEXOR [Suspect]
     Dosage: 300 MG 1X PER 1 DAY ORAL
     Route: 048
  2. TRANYLCYPROMINE                          (TRANYLCYPROMINE) [Concomitant]

REACTIONS (6)
  - ACCIDENTAL EXPOSURE [None]
  - DELIRIUM [None]
  - HYPERTHERMIA [None]
  - MUSCLE RIGIDITY [None]
  - RESPIRATORY FAILURE [None]
  - SEROTONIN SYNDROME [None]
